FAERS Safety Report 14210876 (Version 1)
Quarter: 2017Q4

REPORT INFORMATION
  Report Type: Spontaneous
  Country: HU (occurrence: HU)
  Receive Date: 20171121
  Receipt Date: 20171121
  Transmission Date: 20180321
  Serious: Yes (Other)
  Sender: FDA-Public Use
  Company Number: HU-TEVA-2017-HU-826086

PATIENT
  Age: 45 Year
  Sex: Female

DRUGS (7)
  1. METHYLPREDNISOLONE. [Suspect]
     Active Substance: METHYLPREDNISOLONE
     Indication: MUSCULAR WEAKNESS
     Dosage: 8 TO 24 MG DAILY
     Route: 065
  2. EPHEDRINE. [Concomitant]
     Active Substance: EPHEDRINE
     Indication: MUSCULAR WEAKNESS
     Route: 065
  3. CICLOSPORIN [Concomitant]
     Active Substance: CYCLOSPORINE
     Indication: IMMUNOSUPPRESSION
     Dosage: 100 MILLIGRAM DAILY;
     Route: 065
  4. PYRIDOSTIGMINE [Concomitant]
     Active Substance: PYRIDOSTIGMINE
     Indication: MUSCULAR WEAKNESS
     Route: 065
  5. AMBENONIUM CHLORIDE [Concomitant]
     Active Substance: AMBENONIUM CHLORIDE
     Indication: MUSCULAR WEAKNESS
     Route: 065
  6. IMMUNE GLOBULIN [Suspect]
     Active Substance: HUMAN IMMUNOGLOBULIN G
     Indication: MUSCULAR WEAKNESS
     Route: 042
  7. AZATHIOPRINE. [Concomitant]
     Active Substance: AZATHIOPRINE
     Indication: MUSCULAR WEAKNESS
     Dosage: 100 MILLIGRAM DAILY;
     Route: 065
     Dates: start: 2012

REACTIONS (5)
  - Osteoporotic fracture [Unknown]
  - Cataract [Unknown]
  - Spinal compression fracture [Unknown]
  - Abdominal pain [Unknown]
  - Chorioretinopathy [Unknown]

NARRATIVE: CASE EVENT DATE: 2006
